FAERS Safety Report 11762723 (Version 2)
Quarter: 2016Q1

REPORT INFORMATION
  Report Type: Spontaneous
  Country: US (occurrence: US)
  Receive Date: 20151120
  Receipt Date: 20160125
  Transmission Date: 20160525
  Serious: Yes (Hospitalization, Disabling, Other)
  Sender: FDA-Public Use
  Company Number: US-SHIRE-US-002496

PATIENT
  Age: 51 Year
  Sex: Female
  Weight: 87.53 kg

DRUGS (3)
  1. NATPARA (PARATHYROID HORMONE) [Suspect]
     Active Substance: PARATHYROID HORMONE
     Indication: HYPOPARATHYROIDISM
     Dosage: 50 ?G, 1X/DAY:QD
     Route: 058
     Dates: start: 20150818, end: 20150825
  2. NATPARA (PARATHYROID HORMONE) [Suspect]
     Active Substance: PARATHYROID HORMONE
     Dosage: 25 ?G, 1X/DAY:QD
     Route: 058
  3. NATPARA (PARATHYROID HORMONE) [Suspect]
     Active Substance: PARATHYROID HORMONE
     Dosage: 50 ?G, QOD
     Dates: start: 2015, end: 2015

REACTIONS (27)
  - Visual impairment [Unknown]
  - Ureteric obstruction [Recovered/Resolved]
  - Diarrhoea [Recovered/Resolved]
  - Fluid overload [Unknown]
  - Blood iron increased [Unknown]
  - Red blood cell count decreased [Unknown]
  - Fatigue [Unknown]
  - Abdominal distension [Recovered/Resolved]
  - Pollakiuria [Recovered/Resolved]
  - Anaemia [Unknown]
  - Renal impairment [Recovered/Resolved]
  - Confusional state [Not Recovered/Not Resolved]
  - Spinal pain [Unknown]
  - Decreased appetite [Not Recovered/Not Resolved]
  - Drug dose omission [Unknown]
  - Swelling [Unknown]
  - Haemoglobin decreased [Unknown]
  - Blood calcium increased [Recovered/Resolved]
  - Renal failure [Recovered/Resolved]
  - Nephrolithiasis [Recovered/Resolved]
  - Haematocrit decreased [Unknown]
  - Nausea [Recovered/Resolved]
  - Vision blurred [Not Recovered/Not Resolved]
  - Abdominal pain [Recovered/Resolved]
  - Vomiting [Not Recovered/Not Resolved]
  - Headache [Not Recovered/Not Resolved]
  - Hypercalcaemia [Unknown]

NARRATIVE: CASE EVENT DATE: 2015
